FAERS Safety Report 6870248-5 (Version None)
Quarter: 2010Q3

REPORT INFORMATION
  Report Type: 
  Country: None (occurrence: None)
  Receive Date: 20100723
  Receipt Date: 20100714
  Transmission Date: 20110219
  Serious: No
  Sender: FDA-Public Use
  Company Number: US-BIOGENIDEC-2010BI009876

PATIENT
  Age: 54 Year
  Sex: Male
  Weight: 71 kg

DRUGS (9)
  1. TYSABRI [Suspect]
     Indication: MULTIPLE SCLEROSIS
     Route: 042
     Dates: start: 20091002
  2. BACLOFEN [Concomitant]
     Indication: MUSCLE SPASMS
     Dates: start: 20090801
  3. BUPROPION [Concomitant]
     Indication: DEPRESSION
     Dates: start: 20090701
  4. DIAZEPAM [Concomitant]
     Indication: SLEEP DISORDER
     Dates: start: 20080101
  5. FENTANYL CITRATE [Concomitant]
     Indication: BACK PAIN
     Route: 062
  6. FRAGMIN [Concomitant]
     Indication: COAGULOPATHY
     Dates: start: 20080301
  7. LEVOTHYROXINE SODIUM [Concomitant]
     Indication: HYPOTHYROIDISM
     Dates: start: 19800101
  8. LIPITOR [Concomitant]
     Indication: HYPERCHOLESTEROLAEMIA
     Dates: start: 20020101
  9. VICODIN [Concomitant]
     Indication: NEPHROLITHIASIS
     Dates: start: 20000101

REACTIONS (14)
  - BACK PAIN [None]
  - DEPRESSION [None]
  - DIPLOPIA [None]
  - DRY EYE [None]
  - DYSPHONIA [None]
  - EXTRAOCULAR MUSCLE PARESIS [None]
  - FATIGUE [None]
  - HYPOAESTHESIA [None]
  - MEMORY IMPAIRMENT [None]
  - MULTIPLE SCLEROSIS RELAPSE [None]
  - MUSCULAR WEAKNESS [None]
  - PATHOLOGICAL FRACTURE [None]
  - VISION BLURRED [None]
  - WEIGHT DECREASED [None]
